FAERS Safety Report 21655305 (Version 1)
Quarter: 2022Q4

REPORT INFORMATION
  Report Type: Spontaneous
  Country: JP (occurrence: JP)
  Receive Date: 20221129
  Receipt Date: 20221129
  Transmission Date: 20230112
  Serious: Yes (Death, Other)
  Sender: FDA-Public Use
  Company Number: JP-CHUGAI-2022047316

PATIENT
  Age: 8 Decade
  Sex: Male

DRUGS (1)
  1. GAZYVA [Suspect]
     Active Substance: OBINUTUZUMAB
     Indication: Product used for unknown indication
     Dosage: 1000MG/DAY
     Route: 041
     Dates: start: 20190601

REACTIONS (2)
  - Pneumonia [Fatal]
  - Disease progression [Unknown]

NARRATIVE: CASE EVENT DATE: 20220901
